FAERS Safety Report 13651161 (Version 1)
Quarter: 2017Q2

REPORT INFORMATION
  Report Type: Spontaneous
  Country: US (occurrence: US)
  Receive Date: 20170614
  Receipt Date: 20170614
  Transmission Date: 20170830
  Serious: No
  Sender: FDA-Public Use
  Company Number: US-GLAXOSMITHKLINE-US2017087594

PATIENT
  Age: 37 Year
  Sex: Female

DRUGS (1)
  1. ABREVA [Suspect]
     Active Substance: DOCOSANOL
     Indication: ORAL HERPES
     Dosage: UNK
     Dates: start: 20170604, end: 20170604

REACTIONS (8)
  - Lip pruritus [Recovering/Resolving]
  - Pruritus [Recovering/Resolving]
  - Erythema [Unknown]
  - Lip swelling [Recovering/Resolving]
  - Oral herpes [Recovering/Resolving]
  - Condition aggravated [Recovering/Resolving]
  - Nasal pruritus [Recovering/Resolving]
  - Burning sensation [Recovering/Resolving]

NARRATIVE: CASE EVENT DATE: 20170604
